FAERS Safety Report 6460896-9 (Version None)
Quarter: 2009Q4

REPORT INFORMATION
  Report Type: 
  Country: None (occurrence: None)
  Receive Date: 20091130
  Receipt Date: 20091118
  Transmission Date: 20100525
  Serious: Yes (Hospitalization)
  Sender: FDA-Public Use
  Company Number: JP-ASTRAZENECA-2009SE27647

PATIENT
  Age: 76 Year
  Sex: Male

DRUGS (1)
  1. IRESSA [Suspect]
     Route: 048
     Dates: start: 20091001, end: 20091101

REACTIONS (2)
  - HALLUCINATION [None]
  - VERTIGO [None]
